FAERS Safety Report 23982927 (Version 1)
Quarter: 2024Q2

REPORT INFORMATION
  Report Type: Spontaneous
  Country: CA (occurrence: CA)
  Receive Date: 20240617
  Receipt Date: 20240617
  Transmission Date: 20240716
  Serious: Yes (Other)
  Sender: FDA-Public Use
  Company Number: CA-PFIZER INC-202400194329

PATIENT
  Age: 68 Year
  Sex: Male

DRUGS (6)
  1. HYDROMORPHONE HYDROCHLORIDE [Suspect]
     Active Substance: HYDROMORPHONE HYDROCHLORIDE
     Indication: Pain
     Dosage: 4 MG, 4X/DAY
  2. HYDROMORPHONE HYDROCHLORIDE [Suspect]
     Active Substance: HYDROMORPHONE HYDROCHLORIDE
     Dosage: 9 MG, 2X/DAY
  3. COSENTYX [Concomitant]
     Active Substance: SECUKINUMAB
     Dosage: UNK
  4. CIBINQO [Concomitant]
     Active Substance: ABROCITINIB
     Indication: Dermatitis atopic
     Dosage: 1 DF, ON SAMPLES, DOSE NOT PROVIDED
     Route: 048
     Dates: start: 20231110
  5. CIBINQO [Concomitant]
     Active Substance: ABROCITINIB
     Dosage: 200 MG, 1X/DAY
     Route: 048
     Dates: start: 20240215
  6. PREGABALIN [Concomitant]
     Active Substance: PREGABALIN

REACTIONS (1)
  - Delirium [Unknown]

NARRATIVE: CASE EVENT DATE: 20240101
